FAERS Safety Report 18995144 (Version 1)
Quarter: 2021Q1

REPORT INFORMATION
  Report Type: Other
  Country: KR (occurrence: KR)
  Receive Date: 20210311
  Receipt Date: 20210311
  Transmission Date: 20210420
  Serious: Yes (Death)
  Sender: FDA-Public Use
  Company Number: KR-ROCHE-2787491

PATIENT

DRUGS (1)
  1. RITUXIMAB. [Suspect]
     Active Substance: RITUXIMAB
     Indication: PEMPHIGOID
     Dosage: 2 INFUSIONS SEPARATED BY 2 WEEKS
     Route: 042

REACTIONS (2)
  - Off label use [Unknown]
  - Pneumonia [Fatal]
